FAERS Safety Report 9703041 (Version 7)
Quarter: 2014Q2

REPORT INFORMATION
  Report Type: Report from Study
  Country: AT (occurrence: AT)
  Receive Date: 20131122
  Receipt Date: 20140410
  Transmission Date: 20141212
  Serious: Yes (Hospitalization)
  Sender: FDA-Public Use
  Company Number: AT-AMGEN-AUTNI2013080990

PATIENT
  Age: 47 Year
  Sex: Female

DRUGS (11)
  1. DENOSUMAB [Suspect]
     Indication: METASTASES TO BONE
     Dosage: 120 MG, QMO
     Route: 065
     Dates: start: 20130306
  2. PANTOLOC                           /01263204/ [Concomitant]
     Dosage: 40 MG, QD
  3. RATIOGRASTIM [Concomitant]
     Dosage: 30 MIU, TID
  4. CAL-D-VITA [Concomitant]
     Dosage: UNK UNK, BID
  5. MEROPENEM [Concomitant]
     Dosage: 500 MG, BID
  6. LENDORMIN [Concomitant]
     Dosage: 0.25 MG, QD
  7. LOVENOX [Concomitant]
     Dosage: 40 MG, QD
  8. MEXALEN [Concomitant]
     Dosage: 500 MG, TID
  9. DICLOFENAC [Concomitant]
     Dosage: 75 MG, BID
  10. TAZONAM [Concomitant]
     Dosage: 4.5 MG, BID
  11. METOGASTRON [Concomitant]
     Dosage: UNK UNK, AS NECESSARY

REACTIONS (2)
  - Neutropenia [Recovered/Resolved]
  - Pneumothorax [Recovered/Resolved]
